FAERS Safety Report 8270975-1 (Version None)
Quarter: 2012Q1

REPORT INFORMATION
  Report Type: 
  Country: None (occurrence: None)
  Receive Date: 20120327
  Receipt Date: 20090812
  Transmission Date: 20120608
  Serious: Yes (Hospitalization)
  Sender: FDA-Public Use
  Company Number: PHEH2009US09291

PATIENT
  Age: 74 Year
  Sex: Male

DRUGS (1)
  1. GLEEVEC [Suspect]
     Dosage: 100 MG, DAILY, ORAL
     Route: 048
     Dates: start: 20090713, end: 20090810

REACTIONS (1)
  - CEREBROVASCULAR ACCIDENT [None]
